FAERS Safety Report 24710701 (Version 3)
Quarter: 2025Q1

REPORT INFORMATION
  Report Type: Spontaneous
  Country: US (occurrence: US)
  Receive Date: 20241209
  Receipt Date: 20250114
  Transmission Date: 20250408
  Serious: No
  Sender: Kenvue
  Company Number: US-KENVUE-20241103688

PATIENT
  Sex: Female

DRUGS (20)
  1. TYLENOL [Suspect]
     Active Substance: ACETAMINOPHEN
     Indication: Headache
     Route: 065
     Dates: start: 2024
  2. TYLENOL [Suspect]
     Active Substance: ACETAMINOPHEN
     Indication: Pain in jaw
  3. REMODULIN [Concomitant]
     Active Substance: TREPROSTINIL
     Indication: Pulmonary arterial hypertension
     Route: 041
     Dates: start: 202410
  4. REMODULIN [Concomitant]
     Active Substance: TREPROSTINIL
     Route: 041
     Dates: start: 202410
  5. REMODULIN [Concomitant]
     Active Substance: TREPROSTINIL
     Route: 041
     Dates: start: 202410
  6. REMODULIN [Concomitant]
     Active Substance: TREPROSTINIL
     Route: 041
     Dates: start: 202410
  7. REMODULIN [Concomitant]
     Active Substance: TREPROSTINIL
     Route: 041
     Dates: start: 202410
  8. REMODULIN [Concomitant]
     Active Substance: TREPROSTINIL
     Route: 041
     Dates: start: 202410
  9. REMODULIN [Concomitant]
     Active Substance: TREPROSTINIL
     Route: 041
     Dates: start: 2024
  10. REMODULIN [Concomitant]
     Active Substance: TREPROSTINIL
     Route: 041
     Dates: start: 2024
  11. REMODULIN [Concomitant]
     Active Substance: TREPROSTINIL
     Route: 041
     Dates: start: 2024
  12. REMODULIN [Concomitant]
     Active Substance: TREPROSTINIL
     Route: 041
     Dates: start: 20241007
  13. NORCO [Concomitant]
     Active Substance: ACETAMINOPHEN\HYDROCODONE BITARTRATE
     Indication: Headache
     Route: 065
  14. AMBRISENTAN [Concomitant]
     Active Substance: AMBRISENTAN
     Indication: Product used for unknown indication
     Route: 065
  15. OXYGEN [Concomitant]
     Active Substance: OXYGEN
     Indication: Product used for unknown indication
  16. HEPARIN SODIUM [Concomitant]
     Active Substance: HEPARIN SODIUM
     Indication: Product used for unknown indication
     Route: 065
  17. NITRIC OXIDE [Concomitant]
     Active Substance: NITRIC OXIDE
     Indication: Product used for unknown indication
     Route: 065
  18. BUTALBITAL [Concomitant]
     Active Substance: BUTALBITAL
     Indication: Headache
     Route: 065
  19. BUTALBITAL [Concomitant]
     Active Substance: BUTALBITAL
     Indication: Pain in jaw
  20. MACITENTAN\TADALAFIL [Concomitant]
     Active Substance: MACITENTAN\TADALAFIL
     Indication: Product used for unknown indication
     Route: 065

REACTIONS (1)
  - Product use in unapproved indication [Unknown]
